FAERS Safety Report 8348904-1 (Version None)
Quarter: 2012Q2

REPORT INFORMATION
  Report Type: 
  Country: None (occurrence: None)
  Receive Date: 20120508
  Receipt Date: 20120427
  Transmission Date: 20120825
  Serious: Yes (Hospitalization)
  Sender: FDA-Public Use
  Company Number: 2012SP022477

PATIENT
  Age: 60 Year
  Sex: Female

DRUGS (6)
  1. PEGINTERFERON ALFA-2B [Suspect]
     Dosage: 1.5 MCG/ KG;QW; SC
     Route: 058
     Dates: start: 20120316, end: 20120417
  2. TELAVIC (ANTIVIRAL NOS) (1500 MG) [Suspect]
     Dosage: 1500 MG; QD; PO
     Route: 048
     Dates: start: 20120316, end: 20120417
  3. REBETOL [Suspect]
     Dosage: 400 MG; QD; PO
     Route: 048
     Dates: start: 20120316, end: 20120417
  4. ALLEGRA [Concomitant]
  5. ANTEBATE [Concomitant]
  6. LEVOFLOXACIN [Concomitant]

REACTIONS (4)
  - RASH [None]
  - PYELONEPHRITIS [None]
  - SEPSIS [None]
  - PYREXIA [None]
